FAERS Safety Report 10498315 (Version 2)
Quarter: 2014Q4

REPORT INFORMATION
  Report Type: Report from Study
  Country: US (occurrence: US)
  Receive Date: 20141006
  Receipt Date: 20141013
  Transmission Date: 20150528
  Serious: Yes (Other)
  Sender: FDA-Public Use
  Company Number: US-ABBVIE-14P-163-1289887-00

PATIENT
  Sex: Female
  Weight: 59.02 kg

DRUGS (3)
  1. LUPRON DEPOT [Suspect]
     Active Substance: LEUPROLIDE ACETATE
     Indication: ENDOMETRIOSIS
     Route: 030
     Dates: start: 2001, end: 2001
  2. LUPRON DEPOT [Suspect]
     Active Substance: LEUPROLIDE ACETATE
     Route: 030
     Dates: start: 20141006
  3. UNKNOWN BIRTH CONTROL PILL [Concomitant]
     Indication: ENDOMETRIOSIS

REACTIONS (9)
  - Endometriosis [Recovered/Resolved]
  - Endometriosis [Recovered/Resolved]
  - Pelvic pain [Recovered/Resolved]
  - Hot flush [Recovered/Resolved]
  - Pelvic pain [Recovered/Resolved]
  - Endometriosis [Recovered/Resolved]
  - Endometriosis [Recovering/Resolving]
  - Pelvic pain [Recovering/Resolving]
  - Pelvic pain [Recovered/Resolved]

NARRATIVE: CASE EVENT DATE: 2001
